FAERS Safety Report 22747561 (Version 5)
Quarter: 2025Q2

REPORT INFORMATION
  Report Type: Report from Study
  Country: CA (occurrence: CA)
  Receive Date: 20230725
  Receipt Date: 20250529
  Transmission Date: 20250716
  Serious: Yes (Other)
  Sender: TAKEDA
  Company Number: CA-TAKEDA-2019TUS012019

PATIENT
  Age: 29 Year
  Sex: Female

DRUGS (10)
  1. VEDOLIZUMAB [Suspect]
     Active Substance: VEDOLIZUMAB
     Indication: Colitis ulcerative
  2. VEDOLIZUMAB [Suspect]
     Active Substance: VEDOLIZUMAB
  3. VEDOLIZUMAB [Suspect]
     Active Substance: VEDOLIZUMAB
  4. VEDOLIZUMAB [Suspect]
     Active Substance: VEDOLIZUMAB
  5. VEDOLIZUMAB [Suspect]
     Active Substance: VEDOLIZUMAB
  6. VEDOLIZUMAB [Suspect]
     Active Substance: VEDOLIZUMAB
  7. VEDOLIZUMAB [Suspect]
     Active Substance: VEDOLIZUMAB
  8. VEDOLIZUMAB [Suspect]
     Active Substance: VEDOLIZUMAB
  9. PREDNISONE [Concomitant]
     Active Substance: PREDNISONE
  10. SAXENDA [Concomitant]
     Active Substance: LIRAGLUTIDE

REACTIONS (14)
  - Frequent bowel movements [Recovered/Resolved]
  - Feeding disorder [Recovered/Resolved]
  - Colitis [Recovered/Resolved]
  - Haematochezia [Recovered/Resolved]
  - Colitis ulcerative [Recovered/Resolved]
  - Blood potassium decreased [Recovered/Resolved]
  - Malaise [Recovered/Resolved]
  - Rectal haemorrhage [Not Recovered/Not Resolved]
  - Nasopharyngitis [Recovered/Resolved]
  - Therapeutic reaction time decreased [Unknown]
  - Diarrhoea [Recovered/Resolved]
  - Abdominal pain [Recovered/Resolved]
  - Vomiting [Not Recovered/Not Resolved]
  - Nausea [Not Recovered/Not Resolved]

NARRATIVE: CASE EVENT DATE: 20190222
